FAERS Safety Report 7743515-0 (Version None)
Quarter: 2011Q3

REPORT INFORMATION
  Report Type: 
  Country: None (occurrence: None)
  Receive Date: 20110912
  Receipt Date: 20110905
  Transmission Date: 20111222
  Serious: Yes (Other)
  Sender: FDA-Public Use
  Company Number: VE-JNJFOC-20110903471

PATIENT
  Age: 50 Year
  Sex: Female

DRUGS (2)
  1. ULTRACET [Suspect]
     Indication: BACK PAIN
     Dosage: 2 TAB BID
     Route: 048
  2. MICARDIS [Concomitant]
     Indication: HYPERTENSION
     Route: 048

REACTIONS (3)
  - PAIN [None]
  - ADVERSE EVENT [None]
  - OEDEMA [None]
